FAERS Safety Report 14946996 (Version 1)
Quarter: 2018Q2

REPORT INFORMATION
  Report Type: Spontaneous
  Country: US (occurrence: US)
  Receive Date: 20180529
  Receipt Date: 20180529
  Transmission Date: 20180711
  Serious: Yes (Hospitalization, Other)
  Sender: FDA-Public Use
  Company Number: US-JAZZ-2018-US-008271

PATIENT
  Age: 2 Year
  Sex: Female
  Weight: 15.87 kg

DRUGS (8)
  1. VINCRISTINE [Suspect]
     Active Substance: VINCRISTINE
     Indication: B-CELL TYPE ACUTE LEUKAEMIA
     Dosage: 0.96 MG, PER PROTOCOL
     Route: 042
     Dates: start: 20171219
  2. CYTARABINE. [Suspect]
     Active Substance: CYTARABINE
     Indication: B-CELL TYPE ACUTE LEUKAEMIA
     Dosage: 47 MG, PER PROTOCOL
     Route: 042
     Dates: start: 20171205
  3. CYCLOPHOSPHAMIDE. [Suspect]
     Active Substance: CYCLOPHOSPHAMIDE
     Indication: B-CELL TYPE ACUTE LEUKAEMIA
     Dosage: 620 MG, PER PROTOCOL
     Route: 042
     Dates: start: 20171205
  4. RUXOLITINIB [Suspect]
     Active Substance: RUXOLITINIB
     Indication: B-CELL TYPE ACUTE LEUKAEMIA
     Dosage: 30 MG, BID
     Route: 048
     Dates: start: 20171205
  5. PEGASPARGASE [Suspect]
     Active Substance: PEGASPARGASE
     Indication: B-CELL TYPE ACUTE LEUKAEMIA
     Dosage: 1575 U, UNK
     Route: 042
     Dates: start: 20171219, end: 20171219
  6. METHOTREXATE. [Suspect]
     Active Substance: METHOTREXATE
     Indication: B-CELL TYPE ACUTE LEUKAEMIA
     Dosage: 10 MG, WEEKLY
     Route: 037
     Dates: start: 20171205
  7. ASPARAGINASE [Suspect]
     Active Substance: ASPARAGINASE
     Indication: B-CELL TYPE ACUTE LEUKAEMIA
     Dosage: 25000 U, UNK
     Route: 030
     Dates: start: 20171221
  8. MERCAPTOPURINE. [Suspect]
     Active Substance: MERCAPTOPURINE
     Indication: B-CELL TYPE ACUTE LEUKAEMIA
     Dosage: 38 MG, QD
     Route: 048
     Dates: start: 20171205

REACTIONS (1)
  - Febrile neutropenia [Recovered/Resolved]

NARRATIVE: CASE EVENT DATE: 20171227
